FAERS Safety Report 11033126 (Version 1)
Quarter: 2015Q2

REPORT INFORMATION
  Report Type: Report from Study
  Country: US (occurrence: US)
  Receive Date: 20150415
  Receipt Date: 20150415
  Transmission Date: 20150821
  Serious: Yes (Death, Other)
  Sender: FDA-Public Use
  Company Number: US-BAXTER-2015BAX018873

PATIENT

DRUGS (2)
  1. CEFEPIME [Suspect]
     Active Substance: CEFEPIME\CEFEPIME HYDROCHLORIDE
     Indication: CYSTIC FIBROSIS
     Dosage: INFUSED OVER 4 HOURS
     Route: 042
  2. CEFEPIME [Suspect]
     Active Substance: CEFEPIME\CEFEPIME HYDROCHLORIDE
     Indication: OFF LABEL USE

REACTIONS (4)
  - Sepsis [Unknown]
  - Condition aggravated [Unknown]
  - Death [Fatal]
  - Cystic fibrosis [Unknown]
